FAERS Safety Report 8862501 (Version 2)
Quarter: 2012Q4

REPORT INFORMATION
  Report Type: 
  Country: US (occurrence: US)
  Receive Date: 20121026
  Receipt Date: 20121108
  Transmission Date: 20130627
  Serious: Yes (Hospitalization)
  Sender: FDA-Public Use
  Company Number: US-VERTEX PHARMACEUTICAL INC.-2012-023505

PATIENT
  Sex: Female
  Weight: 122 kg

DRUGS (9)
  1. INCIVEK [Suspect]
     Indication: HEPATITIS C
     Dosage: 750 mg, tid
     Route: 048
     Dates: start: 20120810, end: 20121023
  2. PEGINTERFERON [Suspect]
     Indication: HEPATITIS C
     Dosage: 180 ?g, qw
     Route: 058
     Dates: start: 20120810
  3. RIBAVIRIN [Suspect]
     Indication: HEPATITIS C
     Dosage: 600 mg, bid
     Route: 048
     Dates: start: 20120810
  4. NADOLOL [Concomitant]
  5. OMEPRAZOLE [Concomitant]
  6. CALCIUM +VIT D [Concomitant]
  7. LASIX                              /00032601/ [Concomitant]
  8. ALDACTONE                          /00006201/ [Concomitant]
  9. VIT D [Concomitant]

REACTIONS (1)
  - Drug reaction with eosinophilia and systemic symptoms [Unknown]
